FAERS Safety Report 20878347 (Version 6)
Quarter: 2022Q3

REPORT INFORMATION
  Report Type: Report from Study
  Country: SG (occurrence: SG)
  Receive Date: 20220526
  Receipt Date: 20220729
  Transmission Date: 20221027
  Serious: Yes (Hospitalization)
  Sender: FDA-Public Use
  Company Number: SG-GLAXOSMITHKLINE-SG2022GSK080866

PATIENT

DRUGS (33)
  1. BELANTAMAB MAFODOTIN [Suspect]
     Active Substance: BELANTAMAB MAFODOTIN
     Indication: Plasma cell myeloma
     Dosage: 2.5 MG/KG, CYC
     Route: 042
     Dates: start: 20220303, end: 20220303
  2. BELANTAMAB MAFODOTIN [Suspect]
     Active Substance: BELANTAMAB MAFODOTIN
     Dosage: 2.5 MG/KG, CYC
     Route: 042
     Dates: start: 20220324, end: 20220324
  3. BELANTAMAB MAFODOTIN [Suspect]
     Active Substance: BELANTAMAB MAFODOTIN
     Dosage: 1.9 MG/KG, CYC
     Route: 042
     Dates: start: 20220511
  4. ACYCLOVIR [Concomitant]
     Active Substance: ACYCLOVIR
     Indication: Antiviral prophylaxis
     Dosage: 200 MG, BID
     Route: 048
     Dates: start: 20161028
  5. ASPIRIN [Concomitant]
     Active Substance: ASPIRIN
     Indication: Myocardial ischaemia
     Dosage: 100 MG, QD
     Route: 048
     Dates: start: 20050830
  6. CALCIUM CARBONATE TABLET [Concomitant]
     Indication: Supplementation therapy
     Dosage: 625 MG, QD
     Route: 048
     Dates: start: 20211227
  7. ROSUVASTATIN [Concomitant]
     Active Substance: ROSUVASTATIN
     Indication: Hyperlipidaemia
     Dosage: 200 MG, QD
     Route: 048
     Dates: start: 20150702
  8. OMEPRAZOLE [Concomitant]
     Active Substance: OMEPRAZOLE
     Indication: Prophylaxis against gastrointestinal ulcer
     Dosage: 20 MG, QD
     Route: 048
     Dates: start: 20120111
  9. MECOBALAMIN CAPSULES [Concomitant]
     Indication: Supplementation therapy
     Dosage: 1000 UG, QD
     Route: 048
     Dates: start: 20211227, end: 20220323
  10. MECOBALAMIN CAPSULES [Concomitant]
     Dosage: 500 UG, QD
     Route: 048
     Dates: start: 20220324
  11. IRON POLYMALTOSE TABLET [Concomitant]
     Indication: Supplementation therapy
     Dosage: 100 MG, QD
     Route: 048
     Dates: start: 20211227, end: 20220325
  12. FUROSEMIDE [Concomitant]
     Active Substance: FUROSEMIDE
     Indication: Prophylaxis
     Dosage: 200 MG, QD
     Route: 048
     Dates: start: 20211227, end: 20220325
  13. FOLIC ACID [Concomitant]
     Active Substance: FOLIC ACID
     Indication: Supplementation therapy
     Dosage: 5 MG, QD
     Route: 048
     Dates: start: 20211227, end: 20220427
  14. COTRIMOXAZOLE [Concomitant]
     Active Substance: SULFAMETHOXAZOLE\TRIMETHOPRIM
     Indication: Prophylaxis
     Dosage: 480 MG, Z (3 TIME PER WEEK)
     Route: 048
     Dates: start: 20210210
  15. CHOLECALCIFEROL [Concomitant]
     Active Substance: CHOLECALCIFEROL
     Indication: Supplementation therapy
     Dosage: 1 DF, QD
     Route: 048
     Dates: start: 20211227
  16. TEARS NATURALE FREE EYE DROP [Concomitant]
     Indication: Prophylaxis
     Dosage: 1 GTT, QID
     Route: 047
     Dates: start: 20220303
  17. AMLODIPINE [Concomitant]
     Active Substance: AMLODIPINE BESYLATE
     Indication: Hypertension
     Dosage: 2.5 MG, QD
     Route: 048
     Dates: start: 20220304, end: 20220414
  18. ACETAMINOPHEN [Concomitant]
     Active Substance: ACETAMINOPHEN
     Indication: Prophylaxis
     Dosage: 1 G, SINGLE
     Route: 048
     Dates: start: 20220303, end: 20220303
  19. ACETAMINOPHEN [Concomitant]
     Active Substance: ACETAMINOPHEN
     Indication: Prophylaxis
     Dosage: 1 G, SINGLE
     Route: 048
     Dates: start: 20220303, end: 20220303
  20. ACETAMINOPHEN [Concomitant]
     Active Substance: ACETAMINOPHEN
     Dosage: 1 G, PRN
     Route: 048
     Dates: start: 20220304, end: 20220312
  21. PROCODIN SYRUP [Concomitant]
     Indication: Prophylaxis
     Dosage: 10 ML, PRN
     Route: 048
     Dates: start: 20220311, end: 20220318
  22. PROCODIN SYRUP [Concomitant]
     Dosage: 10 ML, PRN
     Route: 048
     Dates: start: 20220406, end: 20220413
  23. DEXAMETHASONE [Concomitant]
     Active Substance: DEXAMETHASONE
     Indication: Renal replacement therapy
     Dosage: 0.5 MG, QD
     Route: 048
     Dates: start: 20220324, end: 20220414
  24. OLIVE OIL EAR DROP [Concomitant]
     Indication: Excessive cerumen production
     Dosage: 3 GTT, PRN
     Route: 001
     Dates: start: 20220330, end: 20220406
  25. CIPROFLOXACIN [Concomitant]
     Active Substance: CIPROFLOXACIN
     Indication: Antibiotic prophylaxis
     Dosage: 250 MG, BID
     Route: 048
     Dates: start: 20220425, end: 20220502
  26. ENALAPRIL MALEATE [Concomitant]
     Active Substance: ENALAPRIL MALEATE
     Indication: Hypertension
     Dosage: 2.5 MG, QD
     Route: 048
     Dates: start: 20220512
  27. POTASSIUM CHLORIDE [Concomitant]
     Active Substance: POTASSIUM CHLORIDE
     Indication: Blood potassium decreased
     Dosage: 20 ML, SINGLE
     Route: 048
     Dates: start: 20220513, end: 20220513
  28. SODIUM PHOSPHATE [Concomitant]
     Active Substance: SODIUM PHOSPHATE
     Indication: Prophylaxis
     Dosage: 1 DF, SINGLE
     Route: 048
     Dates: start: 20220512, end: 20220512
  29. ACTIVATED CHARCOAL TABLET [Concomitant]
     Indication: Diarrhoea
     Dosage: 2 DF, PRN
     Route: 048
     Dates: start: 20220613, end: 20220616
  30. LOPERAMIDE HYDROCHLORIDE CAPSULE [Concomitant]
     Indication: Diarrhoea
     Dosage: 2 MG, PRN
     Route: 048
     Dates: start: 20220613, end: 20220616
  31. LEVOFLOXACIN [Concomitant]
     Active Substance: LEVOFLOXACIN
     Indication: Antibiotic prophylaxis
     Dosage: 750 MG, QOD
     Route: 048
     Dates: start: 20220617
  32. AMLODIPINE [Concomitant]
     Active Substance: AMLODIPINE BESYLATE
     Indication: Hypertension
     Dosage: 5 MG, QD
     Route: 048
     Dates: start: 20220420, end: 20220518
  33. AMLODIPINE [Concomitant]
     Active Substance: AMLODIPINE BESYLATE
     Dosage: 2.5 MG, QD
     Route: 048
     Dates: start: 20220523

REACTIONS (2)
  - Chronic kidney disease [Recovered/Resolved]
  - Condition aggravated [Recovered/Resolved]

NARRATIVE: CASE EVENT DATE: 20220518
